FAERS Safety Report 11553762 (Version 1)
Quarter: 2015Q3

REPORT INFORMATION
  Report Type: Spontaneous
  Country: FR (occurrence: FR)
  Receive Date: 20150925
  Receipt Date: 20150925
  Transmission Date: 20151125
  Serious: Yes (Other)
  Sender: FDA-Public Use
  Company Number: FR-BAXTER-2015BAX051297

PATIENT
  Age: 60 Year
  Sex: Female

DRUGS (18)
  1. ENDOXAN 1000 MG, POUDRE POUR SOLUTION INJECTABLE [Suspect]
     Active Substance: CYCLOPHOSPHAMIDE
     Dosage: SECOND COURSE
     Route: 042
     Dates: start: 20150721, end: 20150721
  2. APROVEL [Concomitant]
     Active Substance: IRBESARTAN
     Indication: PRODUCT USED FOR UNKNOWN INDICATION
     Route: 048
  3. EMEND [Suspect]
     Active Substance: APREPITANT
     Route: 048
     Dates: start: 201507
  4. EMEND [Suspect]
     Active Substance: APREPITANT
     Route: 048
     Dates: start: 20150721
  5. SOLU-MEDROL [Suspect]
     Active Substance: METHYLPREDNISOLONE SODIUM SUCCINATE
     Dosage: 40MG/2ML, LYOPHYLISATE AND SOLUTION FOR PARENTERAL USE
     Route: 042
     Dates: start: 20150818
  6. ZOPHREN [Concomitant]
     Active Substance: ONDANSETRON
     Dosage: FORM STRENGTH: 8MG/4ML
     Route: 042
     Dates: start: 20150721
  7. HERCEPTIN [Suspect]
     Active Substance: TRASTUZUMAB
     Dosage: SECOND COURSE
     Route: 065
     Dates: start: 20150721, end: 20150721
  8. HERCEPTIN [Suspect]
     Active Substance: TRASTUZUMAB
     Dosage: THIRD COURSE
     Route: 042
     Dates: start: 20150818
  9. TAXOTERE [Suspect]
     Active Substance: DOCETAXEL
     Dosage: SECOND COURSE
     Route: 042
     Dates: start: 20150721, end: 20150721
  10. TAXOTERE [Suspect]
     Active Substance: DOCETAXEL
     Indication: INVASIVE DUCTAL BREAST CARCINOMA
     Dosage: FIRST COURSE, DAY 2
     Route: 042
     Dates: start: 20150701, end: 20150701
  11. HERCEPTIN [Suspect]
     Active Substance: TRASTUZUMAB
     Indication: INVASIVE DUCTAL BREAST CARCINOMA
     Dosage: FIRST COURSE, DAY 1
     Route: 042
     Dates: start: 20150630, end: 20150630
  12. SOLU-MEDROL [Suspect]
     Active Substance: METHYLPREDNISOLONE SODIUM SUCCINATE
     Indication: DRY MOUTH
     Dosage: 40MG/2ML, LYOPHYLISATE AND SOLUTION FOR PARENTERAL USE
     Route: 042
     Dates: start: 20150721
  13. ZOPHREN [Concomitant]
     Active Substance: ONDANSETRON
     Indication: PRODUCT USED FOR UNKNOWN INDICATION
     Dosage: FORM STRENGTH: 8MG/4ML
     Route: 042
     Dates: start: 20150701
  14. ENDOXAN 1000 MG, POUDRE POUR SOLUTION INJECTABLE [Suspect]
     Active Substance: CYCLOPHOSPHAMIDE
     Indication: INVASIVE DUCTAL BREAST CARCINOMA
     Dosage: FIRST COURSE, DAY 2
     Route: 042
     Dates: start: 20150701, end: 20150701
  15. EMEND [Suspect]
     Active Substance: APREPITANT
     Indication: PREMEDICATION
     Route: 048
     Dates: start: 201506
  16. SOLUPRED [Suspect]
     Active Substance: PREDNISOLONE
     Indication: PRODUCT USED FOR UNKNOWN INDICATION
     Dosage: ON DAY 1 AND DAY 2
     Route: 048
     Dates: start: 20150701, end: 20150721
  17. SOLU-MEDROL [Suspect]
     Active Substance: METHYLPREDNISOLONE SODIUM SUCCINATE
     Indication: CHEST DISCOMFORT
     Dosage: 40MG/2ML, LYOPHYLISATE AND SOLUTION FOR PARENTERAL USE
     Route: 042
     Dates: start: 20150701
  18. ZOPHREN [Concomitant]
     Active Substance: ONDANSETRON
     Dosage: FORM STRENGTH: 8MG/4ML
     Route: 042
     Dates: start: 20150818

REACTIONS (4)
  - Chest discomfort [Unknown]
  - Vitreous detachment [Unknown]
  - Retinal detachment [Recovered/Resolved]
  - Dry mouth [Unknown]

NARRATIVE: CASE EVENT DATE: 20150701
